FAERS Safety Report 7160000-8 (Version None)
Quarter: 2010Q4

REPORT INFORMATION
  Report Type: 
  Country: None (occurrence: None)
  Receive Date: 20101214
  Receipt Date: 20091121
  Transmission Date: 20110411
  Serious: No
  Sender: FDA-Public Use
  Company Number: US-AMGEN-KDL376193

PATIENT

DRUGS (1)
  1. ENBREL [Suspect]
     Indication: PSORIASIS
     Dosage: 50 MG, 2 TIMES/WK
     Route: 058
     Dates: start: 20070709

REACTIONS (7)
  - BACK PAIN [None]
  - DRUG DOSE OMISSION [None]
  - GALLBLADDER OPERATION [None]
  - IRRITABLE BOWEL SYNDROME [None]
  - NAUSEA [None]
  - PSORIASIS [None]
  - UMBILICAL HERNIA [None]
